FAERS Safety Report 19598159 (Version 1)
Quarter: 2021Q3

REPORT INFORMATION
  Report Type: Spontaneous
  Country: US (occurrence: US)
  Receive Date: 20210721
  Receipt Date: 20210721
  Transmission Date: 20211014
  Serious: Yes (Disabling, Other)
  Sender: FDA-Public Use
  Company Number: None

PATIENT
  Age: 54 Year
  Sex: Male
  Weight: 97.52 kg

DRUGS (9)
  1. THYROXINE [Concomitant]
     Active Substance: LEVOTHYROXINE
  2. VIBERZI [Concomitant]
     Active Substance: ELUXADOLINE
  3. MULTIVITAMIN [Concomitant]
     Active Substance: VITAMINS
  4. POTASSIUM [Concomitant]
     Active Substance: POTASSIUM
  5. LISINOPRIL. [Concomitant]
     Active Substance: LISINOPRIL
  6. D SUPLEMENT [Concomitant]
  7. TEPEZZA [Suspect]
     Active Substance: TEPROTUMUMAB-TRBW
     Indication: ENDOCRINE OPHTHALMOPATHY
     Dosage: ?          OTHER FREQUENCY:INFUSION;?
     Dates: start: 202002, end: 202008
  8. MAGNESIUM [Concomitant]
     Active Substance: MAGNESIUM
  9. B SUPLEMENT [Concomitant]

REACTIONS (1)
  - Deafness [None]

NARRATIVE: CASE EVENT DATE: 20200709
